FAERS Safety Report 6423966-7 (Version None)
Quarter: 2009Q4

REPORT INFORMATION
  Report Type: 
  Country: None (occurrence: None)
  Receive Date: 20091102
  Receipt Date: 20091022
  Transmission Date: 20100525
  Serious: Yes (Hospitalization)
  Sender: FDA-Public Use
  Company Number: PHEH2009US13318

PATIENT
  Sex: Female
  Weight: 62 kg

DRUGS (5)
  1. EXJADE [Suspect]
     Indication: WALDENSTROM'S MACROGLOBULINAEMIA
     Dosage: 1250 MG, QD
     Route: 048
     Dates: start: 20090624
  2. EXJADE [Suspect]
     Indication: ANAEMIA
  3. KEPPRA [Concomitant]
     Dosage: UNK, UNK
  4. HEPSERA [Concomitant]
     Dosage: UNK, UNK
  5. EPIVIR [Concomitant]
     Dosage: UNK, UNK

REACTIONS (2)
  - BONE MARROW TRANSPLANT [None]
  - SEPSIS [None]
